FAERS Safety Report 6569757-8 (Version None)
Quarter: 2010Q1

REPORT INFORMATION
  Report Type: 
  Country: None (occurrence: None)
  Receive Date: 20100204
  Receipt Date: 20100127
  Transmission Date: 20100710
  Serious: Yes (Other)
  Sender: FDA-Public Use
  Company Number: US-KINGPHARMUSA00001-K201000084

PATIENT
  Age: 51 Year
  Sex: Female
  Weight: 86.168 kg

DRUGS (1)
  1. FLECTOR [Suspect]
     Indication: ARTHRITIS
     Dosage: 1 PATCH, EVERY 12 HOURS
     Route: 061
     Dates: start: 20091201

REACTIONS (6)
  - DIZZINESS [None]
  - HEADACHE [None]
  - HEARING IMPAIRED [None]
  - PRESYNCOPE [None]
  - TINNITUS [None]
  - VISUAL IMPAIRMENT [None]
